APPROVED DRUG PRODUCT: SULTRIN
Active Ingredient: TRIPLE SULFA (SULFABENZAMIDE;SULFACETAMIDE;SULFATHIAZOLE)
Strength: 3.7%;2.86%;3.42%
Dosage Form/Route: CREAM;VAGINAL
Application: N005794 | Product #001
Applicant: ORTHO MCNEIL PHARMACEUTICAL INC
Approved: Approved Prior to Jan 1, 1982 | RLD: No | RS: No | Type: DISCN